FAERS Safety Report 9097354 (Version 2)
Quarter: 2013Q2

REPORT INFORMATION
  Report Type: Spontaneous
  Country: US (occurrence: US)
  Receive Date: 20130212
  Receipt Date: 20130405
  Transmission Date: 20140414
  Serious: Yes (Death, Congenital Anomaly, Other)
  Sender: FDA-Public Use
  Company Number: US-PFIZER INC-2013054627

PATIENT
  Sex: Female

DRUGS (4)
  1. LO/OVRAL-28 [Suspect]
     Indication: CONTRACEPTION
     Dosage: 30 MCG-0.3 MG ONE TABLET ONCE A DAY
     Route: 064
     Dates: start: 20091218
  2. CLARITIN [Concomitant]
     Dosage: UNK
     Route: 064
  3. PRENATAL VITAMINS [Concomitant]
     Dosage: UNK
     Route: 064
  4. IBUPROFEN [Concomitant]
     Dosage: UNK
     Route: 064

REACTIONS (4)
  - Maternal exposure during pregnancy [Fatal]
  - Cystic lymphangioma [Fatal]
  - Turner^s syndrome [Fatal]
  - Vascular anomaly [Fatal]
